FAERS Safety Report 18640603 (Version 1)
Quarter: 2020Q4

REPORT INFORMATION
  Report Type: Spontaneous
  Country: US (occurrence: US)
  Receive Date: 20201221
  Receipt Date: 20201221
  Transmission Date: 20210114
  Serious: Yes (Hospitalization)
  Sender: FDA-Public Use
  Company Number: US-JNJFOC-20201228657

PATIENT
  Age: 71 Year
  Sex: Male
  Weight: 65.83 kg

DRUGS (5)
  1. MELOXICAM. [Concomitant]
     Active Substance: MELOXICAM
     Indication: ARTHRITIS
  2. XARELTO [Suspect]
     Active Substance: RIVAROXABAN
     Dosage: SERIAL NO:100003149607
     Route: 048
     Dates: start: 20171214
  3. ADVIL [IBUPROFEN] [Concomitant]
     Active Substance: IBUPROFEN
     Indication: ARTHRITIS
  4. HYDROCODONE [Concomitant]
     Active Substance: HYDROCODONE
     Indication: ARTHRITIS
  5. XARELTO [Suspect]
     Active Substance: RIVAROXABAN
     Indication: THROMBOSIS
     Dosage: SERIAL NO:100003149607
     Route: 048
     Dates: start: 20171214

REACTIONS (2)
  - Contusion [Unknown]
  - Aortic embolus [Recovered/Resolved]

NARRATIVE: CASE EVENT DATE: 20190614
